FAERS Safety Report 11065944 (Version 1)
Quarter: 2015Q2

REPORT INFORMATION
  Report Type: Spontaneous
  Country: US (occurrence: None)
  Receive Date: 20150423
  Receipt Date: 20150423
  Transmission Date: 20150821
  Serious: No
  Sender: FDA-Public Use
  Company Number: 1937531-2015-00004

PATIENT

DRUGS (1)
  1. CV MEDICATED LOTION SOAP [Suspect]
     Active Substance: TRICLOSAN

REACTIONS (1)
  - Dermatitis [None]

NARRATIVE: CASE EVENT DATE: 20141201
